FAERS Safety Report 20940925 (Version 5)
Quarter: 2023Q2

REPORT INFORMATION
  Report Type: Report from Study
  Country: US (occurrence: US)
  Receive Date: 20220609
  Receipt Date: 20230605
  Transmission Date: 20230721
  Serious: No
  Sender: FDA-Public Use
  Company Number: US-NOVARTISTESTPH-NVSC2022US132804

PATIENT
  Sex: Female

DRUGS (1)
  1. ENTRESTO [Suspect]
     Active Substance: SACUBITRIL\VALSARTAN
     Indication: Cardiac failure congestive
     Dosage: 1 DOSAGE FORM, QD (49/51MG)
     Route: 048
     Dates: start: 202204

REACTIONS (6)
  - Chest discomfort [Unknown]
  - Asthenia [Unknown]
  - Product supply issue [Unknown]
  - Manufacturing product shipping issue [Unknown]
  - Product physical issue [Unknown]
  - Inappropriate schedule of product administration [Unknown]
